FAERS Safety Report 4584546-1 (Version None)
Quarter: 2005Q1

REPORT INFORMATION
  Report Type: 
  Country: None (occurrence: None)
  Receive Date: 20050216
  Receipt Date: 20040819
  Transmission Date: 20050727
  Serious: Yes (Hospitalization)
  Sender: FDA-Public Use
  Company Number: DE-ABBOTT-04P-062-0271158-00

PATIENT
  Sex: Female

DRUGS (13)
  1. HUMIRA [Suspect]
     Indication: DRUG USE FOR UNKNOWN INDICATION
     Route: 058
     Dates: start: 20030411
  2. HUMIRA [Suspect]
  3. HUMIRA [Suspect]
  4. HUMIRA [Suspect]
     Dosage: 40MG/520MG
  5. HUMIRA [Suspect]
     Dosage: 40MG/440MG
  6. METHOTREXATE SODIUM [Concomitant]
     Indication: DRUG USE FOR UNKNOWN INDICATION
     Dates: start: 20020401, end: 20020805
  7. METHOTREXATE SODIUM [Concomitant]
     Dates: start: 20021206, end: 20030411
  8. METHOTREXATE SODIUM [Concomitant]
     Dates: start: 20030411, end: 20041018
  9. METHOTREXATE SODIUM [Concomitant]
  10. METHOTREXATE SODIUM [Concomitant]
  11. METHOTREXATE SODIUM [Concomitant]
  12. METHOTREXATE SODIUM [Concomitant]
  13. METHOTREXATE SODIUM [Concomitant]

REACTIONS (1)
  - ARTHRODESIS [None]
